FAERS Safety Report 9790717 (Version 4)
Quarter: 2014Q1

REPORT INFORMATION
  Report Type: Spontaneous
  Country: PT (occurrence: PT)
  Receive Date: 20131231
  Receipt Date: 20140128
  Transmission Date: 20141002
  Serious: Yes (Life-Threatening, Hospitalization)
  Sender: FDA-Public Use
  Company Number: PT-VIIV HEALTHCARE LIMITED-B0956583A

PATIENT
  Age: 45 Year
  Sex: Female

DRUGS (10)
  1. KIVEXA [Suspect]
     Indication: HIV INFECTION
     Route: 065
  2. REYATAZ [Concomitant]
     Indication: HIV INFECTION
     Route: 065
  3. NORVIR [Concomitant]
     Indication: HIV INFECTION
  4. ASPIRINE [Concomitant]
  5. CLOPIDOGREL [Concomitant]
  6. ESOMEPRAZOLE [Concomitant]
  7. CARVEDILOL [Concomitant]
  8. FLUVASTATIN [Concomitant]
  9. PANTOPRAZOLE [Concomitant]
  10. ATORVASTATINE [Concomitant]

REACTIONS (5)
  - Acute myocardial infarction [Recovering/Resolving]
  - Hypoglycaemia [Unknown]
  - Hypotension [Unknown]
  - Blood urea increased [Unknown]
  - Blood creatinine increased [Unknown]
